FAERS Safety Report 14579085 (Version 2)
Quarter: 2018Q1

REPORT INFORMATION
  Report Type: Spontaneous
  Country: SI (occurrence: SI)
  Receive Date: 20180227
  Receipt Date: 20180314
  Transmission Date: 20180509
  Serious: No
  Sender: FDA-Public Use
  Company Number: SI-BIOGEN-2018BI00530840

PATIENT
  Age: 42 Year
  Sex: Male

DRUGS (1)
  1. TYSABRI [Suspect]
     Active Substance: NATALIZUMAB
     Indication: MULTIPLE SCLEROSIS
     Route: 065
     Dates: start: 2014

REACTIONS (2)
  - Multiple sclerosis relapse [Unknown]
  - Monoparesis [Unknown]
